FAERS Safety Report 7475471-7 (Version None)
Quarter: 2011Q2

REPORT INFORMATION
  Report Type: 
  Country: None (occurrence: None)
  Receive Date: 20110512
  Receipt Date: 20110506
  Transmission Date: 20111010
  Serious: Yes (Life-Threatening, Hospitalization, Other)
  Sender: FDA-Public Use
  Company Number: PHFR2010IE05828

PATIENT
  Sex: Male
  Weight: 107 kg

DRUGS (9)
  1. CLOZARIL [Suspect]
     Dosage: 250 MG, UNK
     Route: 048
     Dates: start: 20101129, end: 20101215
  2. DIAZEPAM [Concomitant]
     Indication: SCHIZOPHRENIA, PARANOID TYPE
     Dosage: 6 MG, UNK
     Route: 048
     Dates: start: 20101119
  3. ARIPIPRAZOLE [Concomitant]
     Dosage: 20 MG, UNK
     Route: 048
     Dates: start: 20101213
  4. CLOZARIL [Suspect]
     Indication: SCHIZOPHRENIA
     Route: 048
     Dates: start: 20101123
  5. ARIPIPRAZOLE [Concomitant]
     Indication: SCHIZOPHRENIA, PARANOID TYPE
     Dosage: 25 MG, UNK
     Route: 048
     Dates: start: 20101129
  6. CLOZARIL [Suspect]
     Dosage: 300 MG, QD
     Route: 048
  7. DIAZEPAM [Concomitant]
     Dosage: 4MG
     Route: 048
     Dates: start: 20101209
  8. HALOPERIDOL [Concomitant]
  9. SENNA-MINT WAF [Concomitant]
     Dosage: '2 TABS'
     Route: 050
     Dates: start: 20101208

REACTIONS (9)
  - RASH MACULAR [None]
  - LOWER RESPIRATORY TRACT INFECTION [None]
  - TACHYCARDIA [None]
  - MENTAL IMPAIRMENT [None]
  - ELECTROCARDIOGRAM CHANGE [None]
  - LYMPHADENOPATHY [None]
  - WHITE BLOOD CELL COUNT INCREASED [None]
  - MYOCARDITIS [None]
  - NEUTROPHIL COUNT INCREASED [None]
